FAERS Safety Report 11512563 (Version 1)
Quarter: 2015Q3

REPORT INFORMATION
  Report Type: Spontaneous
  Country: US (occurrence: US)
  Receive Date: 20150916
  Receipt Date: 20150916
  Transmission Date: 20151125
  Serious: Yes (Life-Threatening, Hospitalization, Other)
  Sender: FDA-Public Use
  Company Number: US-VIIV HEALTHCARE LIMITED-US2015131913

PATIENT
  Age: 51 Year
  Sex: Male

DRUGS (6)
  1. RIFAMPIN. [Suspect]
     Active Substance: RIFAMPIN
     Dosage: UNK
  2. ETHAMBUTOL [Suspect]
     Active Substance: ETHAMBUTOL HYDROCHLORIDE
     Dosage: UNK
  3. ATRIPLA [Suspect]
     Active Substance: EFAVIRENZ\EMTRICITABINE\TENOFOVIR DISOPROXIL FUMARATE
  4. AZITHROMYCIN [Suspect]
     Active Substance: AZITHROMYCIN ANHYDROUS
     Dosage: UNK
  5. TRIUMEQ [Suspect]
     Active Substance: ABACAVIR SULFATE\DOLUTEGRAVIR SODIUM\LAMIVUDINE
     Indication: HIV INFECTION
     Dosage: 600MG ABACAVIR/50MG DOLUTEGRAVIR/AND 300MG LAMIVUDINE, 1 TABLET QD
     Route: 048
     Dates: start: 20150704
  6. ATOVAQUONE. [Suspect]
     Active Substance: ATOVAQUONE
     Dosage: UNK

REACTIONS (6)
  - Vomiting [Not Recovered/Not Resolved]
  - Middle insomnia [Not Recovered/Not Resolved]
  - Hunger [Not Recovered/Not Resolved]
  - Abdominal pain upper [Not Recovered/Not Resolved]
  - Intentional product misuse [Unknown]
  - Mycobacterium avium complex infection [Recovering/Resolving]

NARRATIVE: CASE EVENT DATE: 20150712
